FAERS Safety Report 4788169-0 (Version None)
Quarter: 2005Q3

REPORT INFORMATION
  Report Type: 
  Country: None (occurrence: None)
  Receive Date: 20050920
  Receipt Date: 20050617
  Transmission Date: 20060218
  Serious: Yes (Other)
  Sender: FDA-Public Use
  Company Number: PHEH2005US06085

PATIENT
  Age: 57 Year
  Sex: Female
  Weight: 40.8 kg

DRUGS (4)
  1. FEMARA [Suspect]
     Indication: BREAST CANCER
     Dosage: 2.5 MG, QD, ORAL;  1.25 MG, QD, ORAL
     Route: 048
     Dates: start: 20050101, end: 20050601
  2. FEMARA [Suspect]
     Indication: BREAST CANCER
     Dosage: 2.5 MG, QD, ORAL;  1.25 MG, QD, ORAL
     Route: 048
     Dates: start: 20050601
  3. ULTRACET (PARACETAMOL, TRAMADOL HYDROCHLORIDE) TABLET [Concomitant]
  4. FOSAMAX [Concomitant]

REACTIONS (8)
  - ANOREXIA [None]
  - DIZZINESS [None]
  - FATIGUE [None]
  - HEART RATE INCREASED [None]
  - HYPERHIDROSIS [None]
  - HYPOTENSION [None]
  - OSTEOPOROSIS [None]
  - WEIGHT DECREASED [None]
